FAERS Safety Report 4676445-1 (Version None)
Quarter: 2005Q2

REPORT INFORMATION
  Report Type: 
  Country: None (occurrence: None)
  Receive Date: 20050527
  Receipt Date: 20050520
  Transmission Date: 20051028
  Serious: Yes (Hospitalization)
  Sender: FDA-Public Use
  Company Number: US-JNJFOC-20050506323

PATIENT
  Sex: Male
  Weight: 83.92 kg

DRUGS (12)
  1. TYLENOL (CAPLET) [Suspect]
     Dosage: DECREASED DOSE
     Route: 049
  2. TYLENOL (CAPLET) [Suspect]
     Dosage: 4500MG TO 5000 MG DAILY, UP TO 6000 MG DAILY
     Route: 049
  3. TYLENOL (CAPLET) [Suspect]
     Indication: PAIN
     Dosage: 500 MG, FREQUENCY UNKNOWN
     Route: 049
  4. LORTAB [Suspect]
     Route: 049
  5. LORTAB [Suspect]
     Indication: PAIN
     Dosage: 2 TO 3 DAILY
     Route: 049
  6. ADDERALL 10 [Concomitant]
  7. ADDERALL 10 [Concomitant]
  8. ADDERALL 10 [Concomitant]
  9. ADDERALL 10 [Concomitant]
  10. PHENOBARBITAL [Concomitant]
  11. LIVERAID [Concomitant]
  12. LIVERAID [Concomitant]

REACTIONS (8)
  - CONVULSION [None]
  - DEPRESSION [None]
  - MALAISE [None]
  - OVERDOSE [None]
  - PAIN [None]
  - SKIN DISCOLOURATION [None]
  - SUICIDAL IDEATION [None]
  - VOMITING [None]
